FAERS Safety Report 21532505 (Version 2)
Quarter: 2022Q4

REPORT INFORMATION
  Report Type: Spontaneous
  Country: NZ (occurrence: NZ)
  Receive Date: 20221101
  Receipt Date: 20221221
  Transmission Date: 20230113
  Serious: Yes (Other)
  Sender: FDA-Public Use
  Company Number: NZ-ORGANON-O2210NZL002137

PATIENT
  Age: 24 Year
  Sex: Male
  Weight: 69.4 kg

DRUGS (16)
  1. MOMETASONE FUROATE [Suspect]
     Active Substance: MOMETASONE FUROATE
     Indication: Dermatitis atopic
     Dosage: 0.5 PERCENT, 1 EVERY DAY, AS NECESSARY
     Route: 061
     Dates: start: 20191002, end: 20191014
  2. MOMETASONE FUROATE [Suspect]
     Active Substance: MOMETASONE FUROATE
     Dosage: 0.5 PERCENT, AS NECESSARY (PRN)
     Route: 061
     Dates: start: 20191127, end: 20191220
  3. BETAMETHASONE VALERATE [Suspect]
     Active Substance: BETAMETHASONE VALERATE
     Indication: Dermatitis atopic
     Dosage: UNK
     Route: 061
     Dates: start: 20190903, end: 20190923
  4. BETAMETHASONE VALERATE [Suspect]
     Active Substance: BETAMETHASONE VALERATE
     Dosage: UNK
     Route: 061
     Dates: start: 20210210, end: 20210713
  5. BETAMETHASONE VALERATE [Suspect]
     Active Substance: BETAMETHASONE VALERATE
     Dosage: UNK
     Route: 061
     Dates: start: 20210713
  6. HYDROCORTISONE [Suspect]
     Active Substance: HYDROCORTISONE
     Indication: Dermatitis atopic
     Dosage: UNK
     Route: 061
     Dates: start: 20190924, end: 20191001
  7. HYDROCORTISONE [Suspect]
     Active Substance: HYDROCORTISONE
     Dosage: UNK, AS NECESSARY (PRN)
     Route: 061
     Dates: start: 20191002, end: 20191126
  8. UPADACITINIB [Suspect]
     Active Substance: UPADACITINIB
     Indication: Dermatitis atopic
     Dosage: UNK
     Dates: start: 20190903, end: 20191225
  9. UPADACITINIB [Suspect]
     Active Substance: UPADACITINIB
     Dosage: UNK
     Dates: start: 20191226, end: 20220524
  10. CLOBETASOL PROPIONATE [Suspect]
     Active Substance: CLOBETASOL PROPIONATE
     Indication: Dermatitis atopic
     Dosage: 0.05 PERCENT; AS NECESSARY
     Route: 061
     Dates: start: 20210713, end: 20210815
  11. COSMETICS [Concomitant]
     Active Substance: COSMETICS
     Indication: Dry skin prophylaxis
     Dosage: AS NEEDED 2/DAYS
     Dates: start: 20191220
  12. SERETIDE [Concomitant]
     Active Substance: FLUTICASONE PROPIONATE\SALMETEROL XINAFOATE
     Indication: Asthma
     Dosage: 2 DROPS 2/DAYS
     Dates: start: 20200608
  13. ALBUTEROL SULFATE [Concomitant]
     Active Substance: ALBUTEROL SULFATE
     Indication: Asthma
     Dosage: 2 PUFFS, AS NECESSARY
     Dates: start: 2014
  14. BREO ELLIPTA [Concomitant]
     Active Substance: FLUTICASONE FUROATE\VILANTEROL TRIFENATATE
     Indication: Asthma
     Dosage: 1 DOSAGE FORM, AS NECESSARY
     Dates: start: 2016
  15. LORATADINE [Concomitant]
     Active Substance: LORATADINE
     Indication: Seasonal allergy
     Dosage: 10 MILLIGRAM, AS NECESSARY (PRN)
     Dates: start: 201902, end: 20220221
  16. LORATADINE [Concomitant]
     Active Substance: LORATADINE
     Dosage: 10 MG/ 2 DAYS
     Dates: start: 20220221

REACTIONS (6)
  - Diffuse large B-cell lymphoma [Not Recovered/Not Resolved]
  - Eczema [Not Recovered/Not Resolved]
  - Dermatitis atopic [Not Recovered/Not Resolved]
  - Malaise [Unknown]
  - Night sweats [Unknown]
  - Lymphadenopathy [Not Recovered/Not Resolved]

NARRATIVE: CASE EVENT DATE: 20210101
